FAERS Safety Report 18471719 (Version 1)
Quarter: 2020Q4

REPORT INFORMATION
  Report Type: Spontaneous
  Country: US (occurrence: US)
  Receive Date: 20201106
  Receipt Date: 20201106
  Transmission Date: 20210114
  Serious: No
  Sender: FDA-Public Use
  Company Number: US-HIKMA PHARMACEUTICALS USA INC.-US-H14001-20-03637

PATIENT
  Age: 71 Year
  Sex: Female

DRUGS (2)
  1. IRBESARTAN/HCTZ [Suspect]
     Active Substance: HYDROCHLOROTHIAZIDE\IRBESARTAN
     Dosage: 150/12.5MG
     Route: 048
     Dates: start: 201911
  2. IRBESARTAN/HCTZ [Suspect]
     Active Substance: HYDROCHLOROTHIAZIDE\IRBESARTAN
     Indication: PRODUCT USED FOR UNKNOWN INDICATION
     Dosage: 150/12.5MG
     Route: 048
     Dates: start: 202005

REACTIONS (1)
  - Underdose [Not Recovered/Not Resolved]

NARRATIVE: CASE EVENT DATE: 202005
